FAERS Safety Report 4323250-1 (Version None)
Quarter: 2004Q1

REPORT INFORMATION
  Report Type: 
  Country: None (occurrence: None)
  Receive Date: 20040322
  Receipt Date: 20040309
  Transmission Date: 20041129
  Serious: Yes (Death, Hospitalization)
  Sender: FDA-Public Use
  Company Number: US054902

PATIENT
  Age: 69 Year
  Sex: Male

DRUGS (3)
  1. ENBREL [Suspect]
     Indication: POLYARTHRITIS
     Dosage: 25 MG, TWICE WEEKLY, SC
     Route: 058
     Dates: start: 20000828, end: 20030731
  2. REMICADE [Suspect]
     Dosage: 250 MG IV EVERY 2/6/8 WEEKS
     Dates: start: 20020203, end: 20030415
  3. PREDNISONE [Concomitant]

REACTIONS (12)
  - BRADYCARDIA [None]
  - BRAIN DAMAGE [None]
  - CARDIOVASCULAR DISORDER [None]
  - COMA [None]
  - DECEREBRATION [None]
  - DIVERTICULITIS [None]
  - ENTEROCOCCAL SEPSIS [None]
  - INTERVERTEBRAL DISCITIS [None]
  - LARGE INTESTINE PERFORATION [None]
  - MULTI-ORGAN FAILURE [None]
  - PNEUMONIA [None]
  - VASCULITIS CEREBRAL [None]
